FAERS Safety Report 11464466 (Version 3)
Quarter: 2015Q3

REPORT INFORMATION
  Report Type: Spontaneous
  Country: US (occurrence: US)
  Receive Date: 20150831
  Receipt Date: 20150903
  Transmission Date: 20151125
  Serious: No
  Sender: FDA-Public Use
  Company Number: US-ELI_LILLY_AND_COMPANY-US201107004275

PATIENT
  Age: 73 Year
  Sex: Female

DRUGS (9)
  1. CYMBALTA [Suspect]
     Active Substance: DULOXETINE HYDROCHLORIDE
     Indication: OSTEOARTHRITIS
     Dosage: 60 MG, QD
     Dates: start: 20110526
  2. DEXLANSOPRAZOLE [Concomitant]
     Active Substance: DEXLANSOPRAZOLE
  3. LIPITOR                            /01326102/ [Concomitant]
     Dosage: 10 MG, QD
  4. MOTRIN [Concomitant]
     Active Substance: IBUPROFEN
     Indication: PAIN
  5. MOBIC [Concomitant]
     Active Substance: MELOXICAM
     Indication: PAIN
  6. AMLODIPINE [Concomitant]
     Active Substance: AMLODIPINE BESYLATE
     Dosage: 5 MG, QD
  7. CARAFATE [Concomitant]
     Active Substance: SUCRALFATE
  8. LEVOTHYROXINE. [Concomitant]
     Active Substance: LEVOTHYROXINE
     Dosage: 75 UG, QD
  9. ALEVE [Concomitant]
     Active Substance: NAPROXEN SODIUM
     Indication: PAIN

REACTIONS (10)
  - Oesophageal irritation [Unknown]
  - Dyspepsia [Unknown]
  - Abdominal discomfort [Recovered/Resolved]
  - Drug effect incomplete [Not Recovered/Not Resolved]
  - Gastrooesophageal reflux disease [Unknown]
  - Asthenia [Unknown]
  - Nausea [Recovered/Resolved]
  - Oesophagitis [Unknown]
  - Anxiety [Unknown]
  - Somnolence [Unknown]

NARRATIVE: CASE EVENT DATE: 2009
